FAERS Safety Report 11330092 (Version 5)
Quarter: 2016Q3

REPORT INFORMATION
  Report Type: Spontaneous
  Country: JP (occurrence: JP)
  Receive Date: 20150803
  Receipt Date: 20160727
  Transmission Date: 20161109
  Serious: Yes (Other)
  Sender: FDA-Public Use
  Company Number: JP-PFIZER INC-2015253577

PATIENT
  Age: 32 Year
  Sex: Female

DRUGS (11)
  1. CYMBALTA [Concomitant]
     Active Substance: DULOXETINE HYDROCHLORIDE
  2. NEUROTROPIN [Concomitant]
     Active Substance: NEUROTROPIN
  3. DUROTEP MT [Concomitant]
     Active Substance: FENTANYL
     Dosage: 4.2 MG, UNK
  4. DEPAS [Concomitant]
     Active Substance: ETIZOLAM
  5. GASLON [Concomitant]
     Active Substance: IRSOGLADINE MALEATE
  6. DUROTEP MT [Concomitant]
     Active Substance: FENTANYL
     Dosage: 2.1 MG, UNK
     Dates: start: 201402
  7. LYRICA [Suspect]
     Active Substance: PREGABALIN
     Dosage: 150 MG, 2X/DAY
     Route: 048
     Dates: start: 201307
  8. LYRICA [Suspect]
     Active Substance: PREGABALIN
     Indication: COMPLEX REGIONAL PAIN SYNDROME
     Dosage: 75 MG, 1X/DAY BEFORE BEDTIME
     Route: 048
     Dates: start: 201303
  9. LYRICA [Suspect]
     Active Substance: PREGABALIN
     Indication: PAIN
     Dosage: 75 MG, 2X/DAY
     Route: 048
     Dates: start: 201304
  10. LYRICA [Suspect]
     Active Substance: PREGABALIN
     Indication: OEDEMA
     Dosage: 150 MG, 2X/DAY
     Route: 048
     Dates: start: 201305
  11. LYRICA [Suspect]
     Active Substance: PREGABALIN
     Indication: FEELING HOT
     Dosage: 75 MG, 2X/DAY
     Route: 048
     Dates: start: 201307, end: 201307

REACTIONS (7)
  - Product use issue [Unknown]
  - Drug eruption [Recovered/Resolved]
  - Vomiting [Recovered/Resolved]
  - Menstrual disorder [Recovered/Resolved]
  - Drug tolerance [Unknown]
  - Rotator cuff syndrome [Unknown]
  - Visual acuity reduced [Not Recovered/Not Resolved]

NARRATIVE: CASE EVENT DATE: 201303
